FAERS Safety Report 16459005 (Version 1)
Quarter: 2019Q2

REPORT INFORMATION
  Report Type: Spontaneous
  Country: US (occurrence: US)
  Receive Date: 20190620
  Receipt Date: 20190620
  Transmission Date: 20190711
  Serious: No
  Sender: FDA-Public Use
  Company Number: US-THERAPEUTICSMD-2019TMD01149

PATIENT
  Age: 53 Year
  Sex: Female
  Weight: 62.59 kg

DRUGS (6)
  1. LEVOTHYROXINE. [Concomitant]
     Active Substance: LEVOTHYROXINE
     Dosage: 50 ?G, 1X/DAY
  2. AMBIEN [Concomitant]
     Active Substance: ZOLPIDEM TARTRATE
     Dosage: 2.5 MG, TO HELP WITH SLEEP
  3. IMVEXXY [Suspect]
     Active Substance: ESTRADIOL
     Indication: ATROPHIC VULVOVAGINITIS
  4. VITAMINS [Concomitant]
     Active Substance: VITAMINS
  5. IMVEXXY [Suspect]
     Active Substance: ESTRADIOL
     Indication: OESTROGEN REPLACEMENT THERAPY
     Dosage: 10 ?G, 1X/DAY AT BEFORE BED (9:30 OR 10 AT NIGHT)
     Route: 067
     Dates: start: 20190508, end: 20190521
  6. IMVEXXY [Suspect]
     Active Substance: ESTRADIOL
     Indication: VULVOVAGINAL INFLAMMATION

REACTIONS (8)
  - Vulvovaginal discomfort [Not Recovered/Not Resolved]
  - Malabsorption from administration site [Recovered/Resolved]
  - Vulvovaginal pain [Not Recovered/Not Resolved]
  - Vaginal discharge [Recovered/Resolved]
  - Vulvovaginal burning sensation [Not Recovered/Not Resolved]
  - Vulvovaginal pruritus [Not Recovered/Not Resolved]
  - Product dose omission [Recovered/Resolved]
  - Product residue present [Recovered/Resolved]

NARRATIVE: CASE EVENT DATE: 201905
